FAERS Safety Report 7369252-2 (Version None)
Quarter: 2011Q1

REPORT INFORMATION
  Report Type: 
  Country: None (occurrence: None)
  Receive Date: 20110323
  Receipt Date: 20091026
  Transmission Date: 20110831
  Serious: Yes (Other)
  Sender: FDA-Public Use
  Company Number: A0813421A

PATIENT
  Sex: Female

DRUGS (12)
  1. TYKERB [Suspect]
     Dosage: 1250MG PER DAY
     Route: 048
     Dates: start: 20091020, end: 20110310
  2. MULTIVITAMIN [Concomitant]
  3. IMOVANE [Concomitant]
     Route: 065
  4. XELODA [Suspect]
     Indication: BREAST CANCER
     Dosage: 3400MG PER DAY
     Route: 065
     Dates: start: 20091020
  5. SYNTHROID [Concomitant]
     Route: 065
  6. VITAMIN D [Concomitant]
     Route: 065
  7. VITAMIN B6 [Concomitant]
     Dates: start: 20100216
  8. LIVOSTIN EYE DROPS [Concomitant]
     Dates: start: 20100111
  9. OVOL [Concomitant]
     Dates: start: 20091110
  10. RADIATION THERAPY [Concomitant]
     Route: 065
  11. ZANTAC [Concomitant]
  12. CALCIUM [Concomitant]
     Route: 065

REACTIONS (8)
  - DYSPEPSIA [None]
  - BREAST CANCER METASTATIC [None]
  - ASTHENIA [None]
  - METASTASES TO CENTRAL NERVOUS SYSTEM [None]
  - PAIN [None]
  - FATIGUE [None]
  - ILL-DEFINED DISORDER [None]
  - NAUSEA [None]
